FAERS Safety Report 8806705 (Version 1)
Quarter: 2012Q4

REPORT INFORMATION
  Report Type: Spontaneous
  Country: US (occurrence: None)
  Receive Date: 20120920
  Receipt Date: 20120920
  Transmission Date: 20130627
  Serious: Yes (Other)
  Sender: FDA-Public Use
  Company Number: None

PATIENT
  Age: 53 Year
  Sex: Male
  Weight: 70.31 kg

DRUGS (1)
  1. LITHIUM  CARBONATE [Suspect]
     Route: 048
     Dates: start: 201208

REACTIONS (9)
  - Tremor [None]
  - Muscle spasms [None]
  - Mania [None]
  - Insomnia [None]
  - Agitation [None]
  - Alopecia [None]
  - Gait disturbance [None]
  - Amnesia [None]
  - Thinking abnormal [None]
